FAERS Safety Report 7779120-X (Version None)
Quarter: 2011Q3

REPORT INFORMATION
  Report Type: 
  Country: None (occurrence: None)
  Receive Date: 20110926
  Receipt Date: 20110916
  Transmission Date: 20111222
  Serious: Yes (Other)
  Sender: FDA-Public Use
  Company Number: PHHY2011BR82937

PATIENT
  Sex: Male

DRUGS (5)
  1. CLOPIDOGREL [Suspect]
     Route: 065
  2. BUFFERIN [Concomitant]
     Route: 048
  3. METFORMIN HCL [Suspect]
     Route: 065
  4. ASPIRIN [Concomitant]
  5. SIMVASTATIN [Concomitant]
     Route: 048

REACTIONS (1)
  - INFARCTION [None]
